FAERS Safety Report 4907297-X (Version None)
Quarter: 2006Q1

REPORT INFORMATION
  Report Type: 
  Country: None (occurrence: None)
  Receive Date: 20060208
  Receipt Date: 20060208
  Transmission Date: 20060701
  Serious: Yes (Hospitalization)
  Sender: FDA-Public Use
  Company Number: None

PATIENT
  Age: 66 Year
  Sex: Male
  Weight: 97.5 kg

DRUGS (14)
  1. BACTRIM DS [Suspect]
     Indication: URINARY TRACT INFECTION
     Dosage: 800/160 1 TAB Q 12 HRS
     Dates: start: 20051203, end: 20051214
  2. GEMFIBROZIL [Concomitant]
  3. OMEPRAZOLE [Concomitant]
  4. TAMSULOSIN HCL [Concomitant]
  5. ATENOLOL [Concomitant]
  6. LACTULOSE [Concomitant]
  7. LOSARTAIN [Concomitant]
  8. REGULAR INSULIN [Concomitant]
  9. NPH INSULIN [Concomitant]
  10. SODIUM BICARB [Concomitant]
  11. ATORVASTATIN CALCIUM [Concomitant]
  12. DOCUSATE [Concomitant]
  13. FUROSEMIDE [Concomitant]
  14. ASPIRIN [Concomitant]

REACTIONS (3)
  - HYPERKALAEMIA [None]
  - MALAISE [None]
  - RENAL FAILURE [None]
